FAERS Safety Report 19863183 (Version 1)
Quarter: 2021Q3

REPORT INFORMATION
  Report Type: Spontaneous
  Country: PT (occurrence: PT)
  Receive Date: 20210921
  Receipt Date: 20210921
  Transmission Date: 20211014
  Serious: Yes (Other)
  Sender: FDA-Public Use
  Company Number: PT-MYLANLABS-2018M1040705

PATIENT
  Age: 50 Year
  Sex: Male

DRUGS (1)
  1. IMATINIB. [Suspect]
     Active Substance: IMATINIB MESYLATE
     Indication: MORPHOEA
     Dosage: 200 MILLIGRAM, QD

REACTIONS (3)
  - Therapeutic response unexpected [Recovering/Resolving]
  - Off label use [Recovering/Resolving]
  - Periorbital oedema [Unknown]
